FAERS Safety Report 10044468 (Version 1)
Quarter: 2014Q1

REPORT INFORMATION
  Report Type: Spontaneous
  Country: US (occurrence: None)
  Receive Date: 20140306
  Receipt Date: 20140306
  Transmission Date: 20141002
  Serious: Yes (Other)
  Sender: FDA-Public Use
  Company Number: 163-21880-13070421

PATIENT
  Age: 70 Year
  Sex: Male

DRUGS (10)
  1. REVLIMID [Suspect]
     Indication: PLASMA CELL MYELOMA
     Route: 048
     Dates: start: 201112
  2. KETOCONAZOLE (KETOCONAZOLE) [Concomitant]
  3. MULTIVITAMINS (MULTIVITAMINS) [Concomitant]
  4. POTASSIUM CHLORIDE (POTASSIUM CHLORIDE) (TABLETS) [Concomitant]
  5. ATENOLOL (ATENOLOL) (TABLETS) [Concomitant]
  6. SIMVASTATIN (SIMVASTATIN) (TABLETS) [Concomitant]
  7. LISINOPRIL (LISINOPRIL) (TABLETS) [Concomitant]
  8. ASPIRIN (ACETYLSALICYLIC ACID) (TABLETS) [Concomitant]
  9. VITAMIN B-100 (B-KOMPLEX ^LECIVA^) (TABLETS) [Concomitant]
  10. COMPLETE MULTIVITAMIN (MULTIVITAMINS) (TABLETS) [Concomitant]

REACTIONS (2)
  - Swelling face [None]
  - Rash [None]
